FAERS Safety Report 24250238 (Version 1)
Quarter: 2024Q3

REPORT INFORMATION
  Report Type: Spontaneous
  Country: US (occurrence: US)
  Receive Date: 20240826
  Receipt Date: 20240826
  Transmission Date: 20241016
  Serious: No
  Sender: pharmaAND
  Company Number: US-ROCHE-3487478

PATIENT
  Sex: Female

DRUGS (9)
  1. PEGASYS [Suspect]
     Active Substance: PEGINTERFERON ALFA-2A
     Indication: Cutaneous T-cell lymphoma
     Dosage: INJECT 0.5ML SUBCUTANEOUSLY ONCE A WEEK FOR 2 WEEKS, IF NO PROBLEM INCREASE TO 1 ML ONCE WEEKLY
     Route: 058
  2. AMLODIPINE [Concomitant]
     Active Substance: AMLODIPINE BESYLATE
  3. BIOTIN [Concomitant]
     Active Substance: BIOTIN
  4. CRANBERRY [Concomitant]
     Active Substance: CRANBERRY
  5. METOPROLOL [Concomitant]
     Active Substance: METOPROLOL
  6. MENAQUINONE 6 [Concomitant]
     Active Substance: MENAQUINONE 6
  7. ZETIA [Concomitant]
     Active Substance: EZETIMIBE
  8. BENADRYL [Concomitant]
     Active Substance: DIPHENHYDRAMINE HYDROCHLORIDE
  9. VITAMIN D [Concomitant]
     Active Substance: VITAMIN D NOS

REACTIONS (9)
  - Fatigue [Unknown]
  - Somnolence [Unknown]
  - Nausea [Unknown]
  - Diarrhoea [Unknown]
  - Depression [Unknown]
  - Anxiety [Unknown]
  - Psychiatric symptom [Unknown]
  - Off label use [Unknown]
  - Treatment noncompliance [Unknown]
